FAERS Safety Report 13711211 (Version 1)
Quarter: 2017Q3

REPORT INFORMATION
  Report Type: Spontaneous
  Country: US (occurrence: US)
  Receive Date: 20170703
  Receipt Date: 20170703
  Transmission Date: 20171127
  Serious: Yes (Hospitalization, Other)
  Sender: FDA-Public Use
  Company Number: US-OTSUKA-2017_013937

PATIENT
  Sex: Male

DRUGS (2)
  1. BUSULFEX [Suspect]
     Active Substance: BUSULFAN
     Indication: PRODUCT USED FOR UNKNOWN INDICATION
     Dosage: UNK
     Route: 065
  2. BENADRYL [Suspect]
     Active Substance: DIPHENHYDRAMINE HYDROCHLORIDE
     Indication: PLATELET DISORDER
     Dosage: UNK
     Route: 065

REACTIONS (6)
  - Oropharyngeal swelling [Unknown]
  - Face oedema [Not Recovered/Not Resolved]
  - Haemoptysis [Unknown]
  - Epistaxis [Unknown]
  - Mucosal inflammation [Unknown]
  - Thrombocytopenia [Unknown]

NARRATIVE: CASE EVENT DATE: 20170611
